FAERS Safety Report 6108230-8 (Version None)
Quarter: 2009Q1

REPORT INFORMATION
  Report Type: 
  Country: None (occurrence: None)
  Receive Date: 20090303
  Receipt Date: 20090218
  Transmission Date: 20090719
  Serious: Yes (Hospitalization)
  Sender: FDA-Public Use
  Company Number: CIP09000365

PATIENT
  Age: 71 Year
  Sex: Female

DRUGS (10)
  1. ACTONEL [Suspect]
     Indication: OSTEOPOROSIS
     Dosage: 17.5 MG ONCE WEEKLY, ORAL
     Route: 048
     Dates: start: 20080229, end: 20081204
  2. MEIACT (CEFDITOREN PIVOXIL) [Concomitant]
  3. NEUTASE (LYSOZYME HYDROCHLORIDE) [Concomitant]
  4. ETODOLAC [Concomitant]
  5. CELECOX-R (CELECOXIB) [Concomitant]
  6. MYONAL  /00287502/ (EPIRIZOLE HYDROCHLORIDE) [Concomitant]
  7. DASEN (SERRAPEPTASE) [Concomitant]
  8. BERIZYM /00517401/ (ENZYMES NOS) [Concomitant]
  9. MOHRUS (KETOPROFEN) [Concomitant]
  10. VOLTAREN /00372301/ (DICLOFENAC) [Concomitant]

REACTIONS (5)
  - GINGIVAL BLEEDING [None]
  - MALAISE [None]
  - MALNUTRITION [None]
  - NECROTISING ULCERATIVE GINGIVOSTOMATITIS [None]
  - PYREXIA [None]
